FAERS Safety Report 9011505 (Version 1)
Quarter: 2013Q1

REPORT INFORMATION
  Report Type: Spontaneous
  Country: US (occurrence: US)
  Receive Date: 20130108
  Receipt Date: 20130108
  Transmission Date: 20140127
  Serious: Yes (Other)
  Sender: FDA-Public Use
  Company Number: PHEH2013US000623

PATIENT
  Sex: Female

DRUGS (1)
  1. ZOMETA [Suspect]

REACTIONS (9)
  - Osteosarcoma metastatic [Unknown]
  - Ascites [Unknown]
  - Liver disorder [Unknown]
  - Pleural effusion [Unknown]
  - Local swelling [Unknown]
  - Local swelling [Unknown]
  - Bone pain [Unknown]
  - Asthenia [Unknown]
  - Fatigue [Unknown]
